FAERS Safety Report 4433835-X (Version None)
Quarter: 2004Q3

REPORT INFORMATION
  Report Type: 
  Country: None (occurrence: None)
  Receive Date: 20040825
  Receipt Date: 20040812
  Transmission Date: 20050211
  Serious: Yes (Life-Threatening, Hospitalization)
  Sender: FDA-Public Use
  Company Number: 02100-UK-04-0008

PATIENT
  Age: 79 Year
  Sex: Female

DRUGS (7)
  1. CILOSTAZOL [Suspect]
     Indication: PERIPHERAL VASCULAR DISORDER
     Dosage: 200 MG
     Route: 048
     Dates: start: 20020901, end: 20040601
  2. ASPIRIN [Concomitant]
  3. CLOPIDOGREL [Concomitant]
  4. RISEDRONIC ACID [Concomitant]
  5. SIMVASTATIN [Concomitant]
  6. PARACETAMOL [Concomitant]
  7. LOPERAMIDE HCL [Concomitant]

REACTIONS (3)
  - GASTROINTESTINAL HAEMORRHAGE [None]
  - HELICOBACTER INFECTION [None]
  - MELAENA [None]
